FAERS Safety Report 7201921-7 (Version None)
Quarter: 2010Q4

REPORT INFORMATION
  Report Type: 
  Country: None (occurrence: None)
  Receive Date: 20101215
  Receipt Date: 20101201
  Transmission Date: 20110411
  Serious: Yes (Other)
  Sender: FDA-Public Use
  Company Number: ACO_20710_2010

PATIENT
  Age: 70 Year
  Sex: Male
  Weight: 95.2 kg

DRUGS (8)
  1. AMPYRA [Suspect]
     Indication: GAIT DISTURBANCE
     Dosage: 10 MG, BID, ORAL
     Route: 048
     Dates: start: 20100510
  2. COZAAR [Concomitant]
  3. AMLODIPINE [Concomitant]
  4. SYNTHROID [Concomitant]
  5. LIPITOR [Concomitant]
  6. PLAVIX [Concomitant]
  7. TOPROL-XL [Concomitant]
  8. VITAMINS /90003601/) [Concomitant]

REACTIONS (2)
  - ASCITES [None]
  - LOCALISED OEDEMA [None]
